FAERS Safety Report 8368186-4 (Version None)
Quarter: 2012Q2

REPORT INFORMATION
  Report Type: 
  Country: None (occurrence: None)
  Receive Date: 20120517
  Receipt Date: 20120511
  Transmission Date: 20120825
  Serious: Yes (Hospitalization)
  Sender: FDA-Public Use
  Company Number: CH-TEVA-334800USA

PATIENT
  Age: 79 Year
  Sex: Female

DRUGS (8)
  1. RITUXIMAB [Suspect]
     Indication: B-CELL LYMPHOMA
     Route: 042
     Dates: start: 20111121
  2. LENALIDOMIDE [Suspect]
     Indication: B-CELL LYMPHOMA
     Dates: start: 20111121
  3. SOLIFENACIN SUCCINATE [Concomitant]
     Route: 048
     Dates: start: 20110228
  4. PHENPROCOUMON [Concomitant]
     Route: 048
  5. TORSEMIDE [Concomitant]
     Dosage: 5 MILLIGRAM;
     Route: 048
     Dates: start: 20111213
  6. PANTOPRAZOLE [Concomitant]
     Dosage: 40 MILLIGRAM;
     Route: 048
     Dates: start: 20111116
  7. TREANDA [Suspect]
     Indication: B-CELL LYMPHOMA
     Route: 042
     Dates: start: 20111121
  8. MEPROBAMATE [Concomitant]
     Route: 048
     Dates: start: 20110228

REACTIONS (1)
  - GENERAL PHYSICAL HEALTH DETERIORATION [None]
